FAERS Safety Report 12714258 (Version 1)
Quarter: 2016Q3

REPORT INFORMATION
  Report Type: Spontaneous
  Country: US (occurrence: US)
  Receive Date: 20160905
  Receipt Date: 20160905
  Transmission Date: 20161109
  Serious: No
  Sender: FDA-Public Use
  Company Number: US-JAZZ-2016-US-008718

PATIENT
  Sex: Male

DRUGS (47)
  1. NEXIUM [Concomitant]
     Active Substance: ESOMEPRAZOLE MAGNESIUM
  2. PRAVASTATIN SODIUM. [Concomitant]
     Active Substance: PRAVASTATIN SODIUM
  3. ALLEGRA ALLERGY [Concomitant]
     Active Substance: FEXOFENADINE HYDROCHLORIDE
  4. ASPIRIN. [Concomitant]
     Active Substance: ASPIRIN
  5. DUONEB [Concomitant]
     Active Substance: ALBUTEROL SULFATE\IPRATROPIUM BROMIDE
  6. FLOMAX [Concomitant]
     Active Substance: TAMSULOSIN HYDROCHLORIDE
  7. PREVACID [Concomitant]
     Active Substance: LANSOPRAZOLE
  8. PROVENTIL HFA [Concomitant]
     Active Substance: ALBUTEROL SULFATE
  9. ATROVENT [Concomitant]
     Active Substance: IPRATROPIUM BROMIDE
  10. WELLBUTRIN [Concomitant]
     Active Substance: BUPROPION HYDROCHLORIDE
  11. ANAFRANIL [Concomitant]
     Active Substance: CLOMIPRAMINE HYDROCHLORIDE
  12. NICOTINE. [Concomitant]
     Active Substance: NICOTINE
  13. ZOLOFT [Concomitant]
     Active Substance: SERTRALINE HYDROCHLORIDE
  14. ZYRTEC [Concomitant]
     Active Substance: CETIRIZINE HYDROCHLORIDE
  15. PROPRANOLOL [Concomitant]
     Active Substance: PROPRANOLOL\PROPRANOLOL HYDROCHLORIDE
  16. PROMETHAZINE [Concomitant]
     Active Substance: PROMETHAZINE\PROMETHAZINE HYDROCHLORIDE
  17. LISINOPRIL. [Concomitant]
     Active Substance: LISINOPRIL
  18. NITROSTAT [Concomitant]
     Active Substance: NITROGLYCERIN
  19. SINGULAIR [Concomitant]
     Active Substance: MONTELUKAST SODIUM
  20. IMDUR [Concomitant]
     Active Substance: ISOSORBIDE MONONITRATE
  21. PROTONIX [Concomitant]
     Active Substance: PANTOPRAZOLE SODIUM
  22. HYDROCHLOROTHIAZIDE. [Concomitant]
     Active Substance: HYDROCHLOROTHIAZIDE
  23. XYREM [Suspect]
     Active Substance: SODIUM OXYBATE
     Indication: CATAPLEXY
     Dosage: 4.5 G, FIRST DOSE
     Route: 048
     Dates: start: 201107, end: 201112
  24. EPIPEN [Concomitant]
     Active Substance: EPINEPHRINE
  25. GABAPENTIN. [Concomitant]
     Active Substance: GABAPENTIN
  26. VOLTAREN [Concomitant]
     Active Substance: DICLOFENAC SODIUM
  27. XYREM [Suspect]
     Active Substance: SODIUM OXYBATE
     Dosage: 2.25 G, SECOND DOSE
     Route: 048
     Dates: start: 201107, end: 201112
  28. NORCO [Concomitant]
     Active Substance: ACETAMINOPHEN\HYDROCODONE BITARTRATE
  29. QNASL [Concomitant]
     Active Substance: BECLOMETHASONE DIPROPIONATE
  30. ALBUTEROL SULFATE. [Concomitant]
     Active Substance: ALBUTEROL SULFATE
  31. ADDERALL [Concomitant]
     Active Substance: AMPHETAMINE ASPARTATE\AMPHETAMINE SULFATE\DEXTROAMPHETAMINE SACCHARATE\DEXTROAMPHETAMINE SULFATE
  32. XYREM [Suspect]
     Active Substance: SODIUM OXYBATE
     Dosage: 4.5 G, BID
     Route: 048
     Dates: start: 201112, end: 201604
  33. AMLODIPINE BESYLATE. [Concomitant]
     Active Substance: AMLODIPINE BESYLATE
  34. RANEXA [Concomitant]
     Active Substance: RANOLAZINE
  35. QNASL [Concomitant]
     Active Substance: BECLOMETHASONE DIPROPIONATE
  36. XYREM [Suspect]
     Active Substance: SODIUM OXYBATE
     Indication: NARCOLEPSY
     Dosage: 2.25 G, BID
     Route: 048
     Dates: start: 201106, end: 201107
  37. NITROLINGUAL [Concomitant]
     Active Substance: NITROGLYCERIN
  38. PLAVIX [Concomitant]
     Active Substance: CLOPIDOGREL BISULFATE
  39. PULMICORT TURBUHALER [Concomitant]
     Active Substance: BUDESONIDE
  40. ADVAIR HFA [Concomitant]
     Active Substance: FLUTICASONE PROPIONATE\SALMETEROL XINAFOATE
  41. ALLERGEN [Concomitant]
     Active Substance: UNSPECIFIED INGREDIENT
  42. FLEXERIL [Concomitant]
     Active Substance: CYCLOBENZAPRINE HYDROCHLORIDE
  43. LIPITOR [Concomitant]
     Active Substance: ATORVASTATIN CALCIUM
  44. PRIMIDONE. [Concomitant]
     Active Substance: PRIMIDONE
  45. CYCLOBENZAPRINE [Concomitant]
     Active Substance: CYCLOBENZAPRINE
  46. ISOSORBIDE DINITRAT [Concomitant]
  47. PROBIOTIC [Concomitant]
     Active Substance: PROBIOTICS NOS

REACTIONS (2)
  - Substance use [Unknown]
  - Intentional product use issue [Unknown]
